FAERS Safety Report 7123764-5 (Version None)
Quarter: 2010Q4

REPORT INFORMATION
  Report Type: 
  Country: None (occurrence: None)
  Receive Date: 20101125
  Receipt Date: 20101113
  Transmission Date: 20110411
  Serious: Yes (Hospitalization)
  Sender: FDA-Public Use
  Company Number: PHHY2010US77445

PATIENT
  Age: 58 Year
  Sex: Female

DRUGS (1)
  1. EXELON [Suspect]
     Dosage: UNK
     Route: 062

REACTIONS (2)
  - DEMENTIA ALZHEIMER'S TYPE [None]
  - MEMORY IMPAIRMENT [None]
